FAERS Safety Report 6274161-6 (Version None)
Quarter: 2009Q3

REPORT INFORMATION
  Report Type: 
  Country: None (occurrence: None)
  Receive Date: 20090720
  Receipt Date: 20090708
  Transmission Date: 20100115
  Serious: Yes (Other)
  Sender: FDA-Public Use
  Company Number: US-PFIZER INC-2009188972

PATIENT
  Sex: Female
  Weight: 86.182 kg

DRUGS (2)
  1. LYRICA [Suspect]
     Indication: PAIN
     Dosage: 25 MG, 2X/DAY
     Dates: start: 20090101
  2. GABAPENTIN [Suspect]
     Dosage: 300 MG, 4X/DAY

REACTIONS (7)
  - CARPAL TUNNEL SYNDROME [None]
  - DRUG TOXICITY [None]
  - DYSSTASIA [None]
  - GAIT DISTURBANCE [None]
  - MALAISE [None]
  - PAIN IN EXTREMITY [None]
  - TREMOR [None]
